FAERS Safety Report 7426454-4 (Version None)
Quarter: 2011Q2

REPORT INFORMATION
  Report Type: 
  Country: None (occurrence: None)
  Receive Date: 20110420
  Receipt Date: 20110414
  Transmission Date: 20111010
  Serious: Yes (Other)
  Sender: FDA-Public Use
  Company Number: US-PFIZER INC-2009287680

PATIENT
  Sex: Female

DRUGS (3)
  1. SULFASALAZINE [Suspect]
     Dosage: UNK
     Dates: start: 20050512, end: 20050501
  2. ASACOL [Concomitant]
     Dosage: UNK
  3. ENBREL [Suspect]
     Indication: RHEUMATOID ARTHRITIS
     Dosage: UNK

REACTIONS (1)
  - ADVERSE DRUG REACTION [None]
